FAERS Safety Report 4356556-0 (Version None)
Quarter: 2004Q2

REPORT INFORMATION
  Report Type: 
  Country: None (occurrence: None)
  Receive Date: 20040507
  Receipt Date: 20040504
  Transmission Date: 20050107
  Serious: Yes (Death)
  Sender: FDA-Public Use
  Company Number: 200416442BWH

PATIENT
  Age: 48 Year
  Sex: Male

DRUGS (6)
  1. LEVITRA [Suspect]
     Dosage: ORAL
     Route: 048
  2. MAXZIDE [Concomitant]
  3. DIGOXIN [Concomitant]
  4. XANAX [Concomitant]
  5. LASIX [Concomitant]
  6. K-DUR 10 [Concomitant]

REACTIONS (1)
  - DEATH [None]
